FAERS Safety Report 17504030 (Version 1)
Quarter: 2020Q1

REPORT INFORMATION
  Report Type: Spontaneous
  Country: US (occurrence: US)
  Receive Date: 20200305
  Receipt Date: 20200305
  Transmission Date: 20200409
  Serious: No
  Sender: FDA-Public Use
  Company Number: US-ROCHE-2359810

PATIENT
  Sex: Female

DRUGS (18)
  1. DULERA [Concomitant]
     Active Substance: FORMOTEROL FUMARATE DIHYDRATE\MOMETASONE FUROATE
  2. PREDNISONE. [Concomitant]
     Active Substance: PREDNISONE
  3. IBUPROFEN. [Concomitant]
     Active Substance: IBUPROFEN
  4. TAMIFLU [Concomitant]
     Active Substance: OSELTAMIVIR PHOSPHATE
  5. CLARITHROMYCIN. [Concomitant]
     Active Substance: CLARITHROMYCIN
  6. METOPROLOL. [Concomitant]
     Active Substance: METOPROLOL
  7. SUCCINATE SODIUM [Concomitant]
  8. NAPROXEN. [Concomitant]
     Active Substance: NAPROXEN
     Route: 061
  9. AZITHROMYCIN ANHYDROUS. [Concomitant]
     Active Substance: AZITHROMYCIN ANHYDROUS
  10. TESSALON [Concomitant]
     Active Substance: BENZONATATE
  11. MONTELUKAST SODIUM. [Concomitant]
     Active Substance: MONTELUKAST SODIUM
  12. AMOXICILLINE [AMOXICILLIN] [Concomitant]
     Active Substance: AMOXICILLIN
  13. CLAVULANATE POTASSIUM [Concomitant]
     Active Substance: CLAVULANATE POTASSIUM
  14. NABUMETONE. [Concomitant]
     Active Substance: NABUMETONE
     Route: 061
  15. SKELAXIN [METAXALONE] [Concomitant]
  16. XOLAIR [Suspect]
     Active Substance: OMALIZUMAB
     Indication: ASTHMA
     Route: 058
  17. GENERESS FE [Concomitant]
     Active Substance: ETHINYL ESTRADIOL\NORETHINDRONE
  18. METHYLPREDNISOLONE. [Concomitant]
     Active Substance: METHYLPREDNISOLONE

REACTIONS (1)
  - Malaise [Unknown]
